FAERS Safety Report 9715227 (Version 2)
Quarter: 2017Q3

REPORT INFORMATION
  Report Type: Report from Study
  Country: US (occurrence: US)
  Receive Date: 20131126
  Receipt Date: 20170811
  Transmission Date: 20171128
  Serious: Yes (Other)
  Sender: FDA-Public Use
  Company Number: US-ROCHE-1304640

PATIENT
  Age: 55 Year
  Sex: Female
  Weight: 76 kg

DRUGS (7)
  1. BEVACIZUMAB. [Suspect]
     Active Substance: BEVACIZUMAB
     Dosage: CYCLE = 21 DAYS?THE SAME DDOSE ON 21/DEC/2012
     Route: 042
     Dates: start: 20121130
  2. BEVACIZUMAB. [Suspect]
     Active Substance: BEVACIZUMAB
     Indication: OVARIAN EPITHELIAL CANCER
     Dosage: CYCLE = 21 DAYS
     Route: 042
     Dates: start: 20121102
  3. BEVACIZUMAB. [Suspect]
     Active Substance: BEVACIZUMAB
     Dosage: CYCLE = 21 DAYS?SAME DOSES ON 17/JUN/2013, 01/AUG/2013, 22/AUG/2013 AND 04/OCT/2013
     Route: 042
     Dates: start: 20130503
  4. BEVACIZUMAB. [Suspect]
     Active Substance: BEVACIZUMAB
     Dosage: CYCLE = 21 DAYS?SAME DOSE ON 06/DEC/2013
     Route: 042
     Dates: start: 20130503, end: 20131227
  5. CISPLATIN. [Suspect]
     Active Substance: CISPLATIN
     Indication: OVARIAN EPITHELIAL CANCER
     Route: 065
  6. BEVACIZUMAB. [Suspect]
     Active Substance: BEVACIZUMAB
     Dosage: CYCLE = 21 DAYS
     Route: 042
     Dates: start: 20130318
  7. BEVACIZUMAB. [Suspect]
     Active Substance: BEVACIZUMAB
     Dosage: CYCLE = 21 DAYS?SAME DOSES ON 22/FEB/2013
     Route: 042
     Dates: start: 20130201

REACTIONS (1)
  - Hypomagnesaemia [Recovered/Resolved]
